FAERS Safety Report 5632622-4 (Version None)
Quarter: 2008Q1

REPORT INFORMATION
  Report Type: 
  Country: None (occurrence: None)
  Receive Date: 20080220
  Receipt Date: 20080208
  Transmission Date: 20080703
  Serious: Yes (Hospitalization, Other)
  Sender: FDA-Public Use
  Company Number: GB-PFIZER INC-2008007906

PATIENT
  Sex: Male
  Weight: 78 kg

DRUGS (2)
  1. CHANTIX [Suspect]
     Indication: SMOKING CESSATION THERAPY
     Route: 048
     Dates: start: 20071206, end: 20071221
  2. LANSOPRAZOLE [Concomitant]
     Dosage: DAILY DOSE:30MG-FREQ:DAILY
     Route: 048

REACTIONS (5)
  - ABDOMINAL DISTENSION [None]
  - ANOREXIA [None]
  - BUNDLE BRANCH BLOCK RIGHT [None]
  - MYOCARDIAL INFARCTION [None]
  - SOMNOLENCE [None]
